FAERS Safety Report 5845016-3 (Version None)
Quarter: 2008Q3

REPORT INFORMATION
  Report Type: 
  Country: None (occurrence: None)
  Receive Date: 20080813
  Receipt Date: 20080813
  Transmission Date: 20090109
  Serious: Yes (Life-Threatening, Hospitalization)
  Sender: FDA-Public Use
  Company Number: None

PATIENT
  Age: 67 Year
  Sex: Female
  Weight: 63.9572 kg

DRUGS (1)
  1. EVISTA [Suspect]

REACTIONS (1)
  - CEREBROVASCULAR ACCIDENT [None]
